FAERS Safety Report 8262906-5 (Version None)
Quarter: 2012Q2

REPORT INFORMATION
  Report Type: 
  Country: None (occurrence: None)
  Receive Date: 20120405
  Receipt Date: 20120215
  Transmission Date: 20120825
  Serious: Yes (Hospitalization)
  Sender: FDA-Public Use
  Company Number: JP-GLAXOSMITHKLINE-B0782472A

PATIENT
  Age: 44 Year
  Sex: Male

DRUGS (3)
  1. MIRTAZAPINE [Concomitant]
     Route: 048
  2. DEPAKENE [Concomitant]
     Route: 048
  3. LAMICTAL [Suspect]
     Indication: DEPRESSION
     Route: 048
     Dates: end: 20120209

REACTIONS (12)
  - PYREXIA [None]
  - WHITE BLOOD CELL COUNT INCREASED [None]
  - EOSINOPHIL PERCENTAGE INCREASED [None]
  - BLOOD LACTATE DEHYDROGENASE INCREASED [None]
  - GENERALISED ERYTHEMA [None]
  - MUCOUS MEMBRANE DISORDER [None]
  - C-REACTIVE PROTEIN INCREASED [None]
  - ERYTHEMA MULTIFORME [None]
  - STEVENS-JOHNSON SYNDROME [None]
  - LYMPHOCYTE PERCENTAGE DECREASED [None]
  - ASPARTATE AMINOTRANSFERASE INCREASED [None]
  - ORAL PAIN [None]
